FAERS Safety Report 10619520 (Version 1)
Quarter: 2014Q4

REPORT INFORMATION
  Report Type: Spontaneous
  Country: DE (occurrence: DE)
  Receive Date: 20141202
  Receipt Date: 20141202
  Transmission Date: 20150529
  Serious: Yes (Congenital Anomaly)
  Sender: FDA-Public Use
  Company Number: DE-ASTRAZENECA-2014SE90747

PATIENT
  Sex: Female

DRUGS (7)
  1. TREVILOR RETARD [Suspect]
     Active Substance: VENLAFAXINE HYDROCHLORIDE
     Indication: DEPRESSION
     Route: 064
  2. PANTOPRAZOLE [Concomitant]
     Active Substance: PANTOPRAZOLE SODIUM
     Indication: GASTRITIS PROPHYLAXIS
     Dates: start: 20090517, end: 20090825
  3. TETRAZEPAM [Suspect]
     Active Substance: TETRAZEPAM
     Indication: INTERVERTEBRAL DISC PROTRUSION
     Route: 064
  4. FOLIO [Concomitant]
     Active Substance: FOLIC ACID
  5. SEROQUEL [Suspect]
     Active Substance: QUETIAPINE FUMARATE
     Indication: DEPRESSION
     Route: 064
  6. HYPNOREX [Suspect]
     Active Substance: LITHIUM CARBONATE
     Route: 064
  7. IBUPROFEN. [Concomitant]
     Active Substance: IBUPROFEN
     Indication: INTERVERTEBRAL DISC PROTRUSION

REACTIONS (3)
  - Renal dysplasia [Not Recovered/Not Resolved]
  - Urethral stenosis [Not Recovered/Not Resolved]
  - Foetal megacystis [Not Recovered/Not Resolved]
